FAERS Safety Report 13527630 (Version 1)
Quarter: 2017Q2

REPORT INFORMATION
  Report Type: Spontaneous
  Country: ES (occurrence: ES)
  Receive Date: 20170509
  Receipt Date: 20170509
  Transmission Date: 20170830
  Serious: Yes (Hospitalization, Other)
  Sender: FDA-Public Use
  Company Number: ES-MYLANLABS-2017M1027288

PATIENT

DRUGS (2)
  1. RISPERIDONE. [Concomitant]
     Active Substance: RISPERIDONE
     Indication: PRODUCT USED FOR UNKNOWN INDICATION
     Dosage: 50MG /15 DAYS
     Route: 065
  2. METHYLPHENIDATE. [Suspect]
     Active Substance: METHYLPHENIDATE
     Indication: PRODUCT USED FOR UNKNOWN INDICATION
     Dosage: SNORT IMMEDIATE RELEASE 30 TABLETS OF 20MG/DAY (600MG/DAY)
     Route: 045

REACTIONS (3)
  - Dystonia [Recovered/Resolved]
  - Drug use disorder [Recovered/Resolved]
  - Withdrawal syndrome [Recovered/Resolved]
